FAERS Safety Report 9366257 (Version 1)
Quarter: 2013Q2

REPORT INFORMATION
  Report Type: Spontaneous
  Country: JP (occurrence: JP)
  Receive Date: 20130625
  Receipt Date: 20130625
  Transmission Date: 20140414
  Serious: Yes (Hospitalization, Other)
  Sender: FDA-Public Use
  Company Number: JP-UCBSA-088879

PATIENT
  Age: 12 Year
  Sex: Female

DRUGS (5)
  1. E KEPPRA [Suspect]
     Indication: EPILEPSY
     Dosage: STRENGTH:250 MG ; VIA TUBE
     Dates: start: 20101115
  2. PHENOBAL [Suspect]
     Indication: CONVULSION
     Route: 042
     Dates: start: 2013, end: 20130501
  3. PHENOBAL [Suspect]
     Indication: CONVULSION
     Dosage: DAILY DOSE: 150 MG
     Route: 042
     Dates: start: 20130502, end: 20130522
  4. TOPINA [Concomitant]
     Dosage: DAILY DOSE: 75 MG
     Route: 048
     Dates: start: 20100901
  5. LAMICTAL [Concomitant]
     Dosage: DAILY DOSE: 45 MG
     Route: 048
     Dates: start: 20100804

REACTIONS (2)
  - Convulsion [Recovering/Resolving]
  - Pancreatic enzymes increased [Recovering/Resolving]
